FAERS Safety Report 5078381-8 (Version None)
Quarter: 2006Q3

REPORT INFORMATION
  Report Type: 
  Country: None (occurrence: None)
  Receive Date: 20060811
  Receipt Date: 20060808
  Transmission Date: 20061208
  Serious: Yes (Hospitalization)
  Sender: FDA-Public Use
  Company Number: GB-GLAXOSMITHKLINE-B0433519A

PATIENT
  Age: 40 Year
  Sex: Female

DRUGS (1)
  1. ARIXTRA [Suspect]
     Route: 058

REACTIONS (4)
  - AMNESIA [None]
  - CEREBROVASCULAR ACCIDENT [None]
  - PARALYSIS [None]
  - TRANSIENT ISCHAEMIC ATTACK [None]
